FAERS Safety Report 5359854-7 (Version None)
Quarter: 2007Q2

REPORT INFORMATION
  Report Type: 
  Country: None (occurrence: None)
  Receive Date: 20070530
  Receipt Date: 20070123
  Transmission Date: 20071010
  Serious: No
  Sender: FDA-Public Use
  Company Number: 2007PV028842

PATIENT
  Age: 60 Year
  Sex: Female

DRUGS (3)
  1. BYETTA [Suspect]
     Indication: DIABETES MELLITUS
     Dosage: SEE IMAGE
     Route: 058
     Dates: start: 20060701, end: 20060801
  2. BYETTA [Suspect]
     Indication: DIABETES MELLITUS
     Dosage: SEE IMAGE
     Route: 058
     Dates: start: 20060801, end: 20070122
  3. INSULIN [Concomitant]

REACTIONS (4)
  - GOUT [None]
  - HEADACHE [None]
  - NAUSEA [None]
  - VOMITING [None]
